FAERS Safety Report 24732805 (Version 1)
Quarter: 2024Q4

REPORT INFORMATION
  Report Type: Spontaneous
  Country: US (occurrence: US)
  Receive Date: 20241213
  Receipt Date: 20241213
  Transmission Date: 20250115
  Serious: Yes (Other)
  Sender: AMGEN
  Company Number: US-AMGEN-USASP2024241775

PATIENT
  Age: 14 Year
  Sex: Male

DRUGS (3)
  1. PREDNISONE [Suspect]
     Active Substance: PREDNISONE
     Indication: Erythema multiforme
     Dosage: 1 MILLIGRAM/KILOGRAM, QD
     Route: 065
  2. PREDNISONE [Suspect]
     Active Substance: PREDNISONE
     Indication: Rash
     Dosage: UNK, TAPERED
     Route: 065
  3. DIPHENHYDRAMINE [Concomitant]
     Active Substance: DIPHENHYDRAMINE
     Indication: Erythema multiforme
     Dosage: UNK
     Route: 065

REACTIONS (2)
  - Erythema multiforme [Unknown]
  - Dermatitis contact [Unknown]
